FAERS Safety Report 6326244-X (Version None)
Quarter: 2009Q3

REPORT INFORMATION
  Report Type: 
  Country: None (occurrence: None)
  Receive Date: 20090820
  Receipt Date: 20090806
  Transmission Date: 20100115
  Serious: Yes (Other)
  Sender: FDA-Public Use
  Company Number: US-1170616

PATIENT
  Age: 10 Year
  Sex: Female

DRUGS (3)
  1. CIPRODEX [Suspect]
     Indication: OTITIS EXTERNA
     Dosage: (3 GTTS AU BID AURICULAR (OTIC)), (3 GTTS AU TID AURICULAR (OTIC) )
     Route: 001
     Dates: start: 20090801, end: 20090805
  2. CIPRODEX [Suspect]
     Indication: OTITIS EXTERNA
     Dosage: (3 GTTS AU BID AURICULAR (OTIC)), (3 GTTS AU TID AURICULAR (OTIC) )
     Route: 001
     Dates: start: 20090806
  3. EAR-GESIC [Concomitant]

REACTIONS (3)
  - EAR HAEMORRHAGE [None]
  - EAR PAIN [None]
  - TYMPANIC MEMBRANE PERFORATION [None]
